FAERS Safety Report 5656122-0 (Version None)
Quarter: 2008Q1

REPORT INFORMATION
  Report Type: 
  Country: None (occurrence: None)
  Receive Date: 20080305
  Receipt Date: 20080215
  Transmission Date: 20080703
  Serious: Yes (Hospitalization)
  Sender: FDA-Public Use
  Company Number: 2008S1000706

PATIENT
  Age: 57 Year
  Sex: Male
  Weight: 99.7913 kg

DRUGS (5)
  1. ATENOLOL AND CHLORTHALIDONE [Suspect]
     Dosage: 50 MG; TWICE A DAY; ORAL; 25 MG; TWICE A DAY; ORAL
     Route: 048
     Dates: start: 20080102, end: 20080110
  2. ATENOLOL AND CHLORTHALIDONE [Suspect]
     Dosage: 50 MG; TWICE A DAY; ORAL; 25 MG; TWICE A DAY; ORAL
     Route: 048
     Dates: start: 20080102, end: 20080110
  3. ALCOHOL /00002101/ [Suspect]
     Dosage: ORAL
     Route: 048
  4. ENALAPRIL (10 MG) [Suspect]
     Indication: HYPERTENSION
     Dosage: 10 MG;DAILY;ORAL
     Route: 048
     Dates: start: 20050101
  5. BUPROPION HCL [Concomitant]

REACTIONS (13)
  - ANXIETY [None]
  - DRUG DISPENSING ERROR [None]
  - FRACTURE DISPLACEMENT [None]
  - HAND FRACTURE [None]
  - HEAD INJURY [None]
  - HYPOTENSION [None]
  - LOSS OF CONSCIOUSNESS [None]
  - NONSPECIFIC REACTION [None]
  - POLLAKIURIA [None]
  - RIB FRACTURE [None]
  - ROAD TRAFFIC ACCIDENT [None]
  - SKIN LACERATION [None]
  - WRONG DRUG ADMINISTERED [None]
